FAERS Safety Report 5173856-5 (Version None)
Quarter: 2006Q4

REPORT INFORMATION
  Report Type: 
  Country: None (occurrence: None)
  Receive Date: 20061214
  Receipt Date: 20061212
  Transmission Date: 20070319
  Serious: Yes (Hospitalization)
  Sender: FDA-Public Use
  Company Number: DE-GLAXOSMITHKLINE-D0051771A

PATIENT
  Age: 38 Year
  Sex: Female

DRUGS (3)
  1. LAMICTAL [Suspect]
     Dosage: 150MG PER DAY
     Route: 048
  2. LAMOTRIGINE [Suspect]
     Dosage: 300MG PER DAY
     Route: 048
  3. SEROQUEL [Suspect]
     Dosage: 600MG PER DAY
     Route: 048

REACTIONS (4)
  - DRY MOUTH [None]
  - FATIGUE [None]
  - GAIT DISTURBANCE [None]
  - SUICIDE ATTEMPT [None]
